FAERS Safety Report 8422467-4 (Version None)
Quarter: 2012Q2

REPORT INFORMATION
  Report Type: 
  Country: None (occurrence: None)
  Receive Date: 20120608
  Receipt Date: 20120531
  Transmission Date: 20120825
  Serious: Yes (Hospitalization)
  Sender: FDA-Public Use
  Company Number: US-PFIZER INC-2012065065

PATIENT
  Sex: Female
  Weight: 47 kg

DRUGS (13)
  1. BLINDED THERAPY [Suspect]
     Indication: HEAD AND NECK CANCER
     Dosage: BLINDED, LOADING DOSE FOLLOWED BY WEEKLY DOSE
     Route: 042
     Dates: start: 20120203, end: 20120203
  2. OMEPRAZOLE [Concomitant]
     Dosage: UNK
     Dates: start: 20120203, end: 20120217
  3. OXYCODONE [Concomitant]
     Dosage: UNK
     Dates: start: 20120203
  4. METFORMIN [Concomitant]
     Dosage: UNK
     Dates: end: 20120217
  5. ONDANSETRON [Concomitant]
     Dosage: UNK
     Dates: start: 20120203
  6. BLINDED THERAPY [Suspect]
     Dosage: BLINDED, WEEKLY
     Dates: start: 20120209, end: 20120216
  7. TYLENOL W/ CODEINE [Concomitant]
     Dosage: UNK
     Dates: start: 20120125, end: 20120217
  8. DEXAMETHASONE [Concomitant]
     Dosage: UNK
     Dates: start: 20120203, end: 20120217
  9. FLUOROURACIL [Suspect]
     Indication: HEAD AND NECK CANCER
     Dosage: 1000 MG/M2, ON DAYS 1 TO 4
     Route: 042
     Dates: start: 20120203, end: 20120203
  10. REGLAN [Concomitant]
     Dosage: UNK
     Dates: start: 20120203
  11. CARBOPLATIN [Suspect]
     Indication: HEAD AND NECK CANCER
     Dosage: 5 AUC, ON DAY 1
     Route: 042
     Dates: start: 20120203, end: 20120203
  12. GLIMEPIRIDE [Concomitant]
  13. VIREAD [Concomitant]
     Dosage: UNK
     Dates: end: 20120217

REACTIONS (2)
  - ABDOMINAL ABSCESS [None]
  - DEVICE RELATED INFECTION [None]
